FAERS Safety Report 6511885-7 (Version None)
Quarter: 2009Q4

REPORT INFORMATION
  Report Type: 
  Country: None (occurrence: None)
  Receive Date: 20091222
  Receipt Date: 20090622
  Transmission Date: 20100525
  Serious: No
  Sender: FDA-Public Use
  Company Number: US-ASTRAZENECA-2009UW16765

PATIENT
  Age: 75 Year
  Sex: Female

DRUGS (5)
  1. CRESTOR [Suspect]
     Indication: BLOOD CHOLESTEROL INCREASED
     Route: 048
     Dates: start: 20090615
  2. NEXIUM [Concomitant]
  3. LEVOTHYROXINE SODIUM [Concomitant]
  4. TRIAMTERENE [Concomitant]
  5. ASPIRIN [Concomitant]

REACTIONS (3)
  - CONSTIPATION [None]
  - MUSCULAR WEAKNESS [None]
  - NIGHT SWEATS [None]
